FAERS Safety Report 8910738 (Version 2)
Quarter: 2012Q4

REPORT INFORMATION
  Report Type: 
  Country: US (occurrence: US)
  Receive Date: 20121115
  Receipt Date: 20121205
  Transmission Date: 20130627
  Serious: Yes (Other)
  Sender: FDA-Public Use
  Company Number: US-ROXANE LABORATORIES, INC.-2012-RO-02358RO

PATIENT
  Sex: Male

DRUGS (2)
  1. MORPHINE [Suspect]
     Indication: BREAKTHROUGH PAIN
  2. MORPHINE [Suspect]
     Indication: BREAKTHROUGH PAIN
     Dosage: 90 mg

REACTIONS (5)
  - Accidental overdose [Unknown]
  - Fall [Unknown]
  - Confusional state [Unknown]
  - Drug ineffective [Unknown]
  - Product quality issue [Unknown]
